FAERS Safety Report 10660780 (Version 2)
Quarter: 2014Q4

REPORT INFORMATION
  Report Type: Spontaneous
  Country: HU (occurrence: HU)
  Receive Date: 20141217
  Receipt Date: 20141218
  Transmission Date: 20150529
  Serious: Yes (Hospitalization)
  Sender: FDA-Public Use
  Company Number: HU-ROCHE-1506882

PATIENT
  Age: 65 Year
  Sex: Female

DRUGS (9)
  1. CO-IRABEL [Concomitant]
     Dosage: 300/25 MG
     Route: 065
  2. MESULID [Concomitant]
     Active Substance: NIMESULIDE
     Route: 065
  3. ZALDIAR [Concomitant]
     Active Substance: ACETAMINOPHEN\TRAMADOL HYDROCHLORIDE
     Route: 065
  4. LETROX [Concomitant]
     Route: 065
  5. CARDILOPIN [Concomitant]
     Route: 065
  6. MILURIT [Concomitant]
     Active Substance: ALLOPURINOL
     Route: 065
  7. ASPIRIN. [Concomitant]
     Active Substance: ASPIRIN
     Route: 065
  8. CAVINTON [Concomitant]
     Active Substance: VINPOCETINE
     Route: 065
  9. ROACTEMRA [Suspect]
     Active Substance: TOCILIZUMAB
     Indication: RHEUMATOID ARTHRITIS
     Route: 042
     Dates: start: 20100309, end: 20140707

REACTIONS (2)
  - Psychotic disorder [Not Recovered/Not Resolved]
  - Senile dementia [Not Recovered/Not Resolved]

NARRATIVE: CASE EVENT DATE: 20140707
